FAERS Safety Report 19904269 (Version 1)
Quarter: 2021Q3

REPORT INFORMATION
  Report Type: Spontaneous
  Country: CA (occurrence: CA)
  Receive Date: 20210930
  Receipt Date: 20210930
  Transmission Date: 20211014
  Serious: Yes (Hospitalization)
  Sender: FDA-Public Use
  Company Number: CA-CELGENEUS-CAN-20210906945

PATIENT
  Sex: Female

DRUGS (1)
  1. ONUREG [Suspect]
     Active Substance: AZACITIDINE
     Indication: PRODUCT USED FOR UNKNOWN INDICATION
     Dosage: 300 MILLIGRAM
     Route: 048
     Dates: start: 20210416

REACTIONS (5)
  - Urinary retention [Unknown]
  - Renal disorder [Unknown]
  - Blood pressure decreased [Unknown]
  - Syncope [Unknown]
  - Hepatitis [Unknown]

NARRATIVE: CASE EVENT DATE: 2021
